FAERS Safety Report 12643273 (Version 1)
Quarter: 2016Q3

REPORT INFORMATION
  Report Type: Report from Study
  Country: CN (occurrence: CN)
  Receive Date: 20160811
  Receipt Date: 20160811
  Transmission Date: 20161109
  Serious: Yes (Other)
  Sender: FDA-Public Use
  Company Number: CN-ROCHE-1810583

PATIENT
  Sex: Female

DRUGS (6)
  1. TRASTUZUMAB [Suspect]
     Active Substance: TRASTUZUMAB
     Indication: HER-2 POSITIVE BREAST CANCER
     Route: 042
  2. PACLITAXEL. [Suspect]
     Active Substance: PACLITAXEL
     Indication: HER-2 POSITIVE BREAST CANCER
     Dosage: DAY 1 OR SAME DOSE DIVIDED IN DAY 1 AND THE EIGHTH DAY
     Route: 065
  3. VINORELBINE [Suspect]
     Active Substance: VINORELBINE\VINORELBINE TARTRATE
     Indication: HER-2 POSITIVE BREAST CANCER
     Dosage: DAY 1 AND DAY 8
     Route: 065
  4. GEMCITABINE [Suspect]
     Active Substance: GEMCITABINE\GEMCITABINE HYDROCHLORIDE
     Indication: HER-2 POSITIVE BREAST CANCER
     Dosage: DAY 1 AND DAY 8
     Route: 065
  5. DOCETAXEL. [Suspect]
     Active Substance: DOCETAXEL
     Indication: HER-2 POSITIVE BREAST CANCER
     Route: 065
  6. CAPECITABINE. [Suspect]
     Active Substance: CAPECITABINE
     Indication: HER-2 POSITIVE BREAST CANCER
     Dosage: DAY 1 AND DAY 14
     Route: 065

REACTIONS (10)
  - Hepatic failure [Unknown]
  - Angina pectoris [Unknown]
  - Blood creatinine increased [Unknown]
  - Chills [Unknown]
  - Pyrexia [Unknown]
  - Haematotoxicity [Unknown]
  - Traumatic lung injury [Unknown]
  - Extremity necrosis [Unknown]
  - Metastases to central nervous system [Unknown]
  - Thrombosis [Unknown]
